FAERS Safety Report 7311348-5 (Version None)
Quarter: 2011Q1

REPORT INFORMATION
  Report Type: 
  Country: None (occurrence: None)
  Receive Date: 20110224
  Receipt Date: 20110218
  Transmission Date: 20110831
  Serious: No
  Sender: FDA-Public Use
  Company Number: US-TEVA-268197USA

PATIENT
  Sex: Female
  Weight: 63.56 kg

DRUGS (2)
  1. LEXAPRO [Concomitant]
     Indication: ANXIETY
  2. PLAN B ONE-STEP [Suspect]
     Indication: POST COITAL CONTRACEPTION
     Route: 048
     Dates: start: 20110216, end: 20110216

REACTIONS (4)
  - FEELING ABNORMAL [None]
  - DEPRESSED MOOD [None]
  - CRYING [None]
  - MENSTRUATION IRREGULAR [None]
